FAERS Safety Report 15136291 (Version 1)
Quarter: 2018Q3

REPORT INFORMATION
  Report Type: Spontaneous
  Country: US (occurrence: US)
  Receive Date: 20180712
  Receipt Date: 20180712
  Transmission Date: 20181010
  Serious: Yes (Other)
  Sender: FDA-Public Use
  Company Number: US-SA-2018SA126949

PATIENT
  Age: 49 Year
  Sex: Female
  Weight: 77.11 kg

DRUGS (4)
  1. ADVAIR HFA [Concomitant]
     Active Substance: FLUTICASONE PROPIONATE\SALMETEROL XINAFOATE
  2. TAXOTERE [Suspect]
     Active Substance: DOCETAXEL
     Dosage: UNK UNK,UNK
     Route: 051
     Dates: start: 20090203, end: 20090203
  3. TAXOTERE [Suspect]
     Active Substance: DOCETAXEL
     Dosage: UNK UNK,UNK
     Route: 051
     Dates: start: 20081111, end: 20081111
  4. PARAPLATIN [Concomitant]
     Active Substance: CARBOPLATIN

REACTIONS (4)
  - Emotional distress [Unknown]
  - Impaired quality of life [Unknown]
  - Anxiety [Unknown]
  - Alopecia [Recovering/Resolving]

NARRATIVE: CASE EVENT DATE: 20081211
